FAERS Safety Report 25740047 (Version 1)
Quarter: 2025Q3

REPORT INFORMATION
  Report Type: Spontaneous
  Country: IN (occurrence: IN)
  Receive Date: 20250829
  Receipt Date: 20250829
  Transmission Date: 20251020
  Serious: Yes (Other)
  Sender: MYLAN
  Company Number: IN-MYLANLABS-2025M1073578

PATIENT
  Age: 9 Year
  Sex: Male

DRUGS (12)
  1. PREGABALIN [Suspect]
     Active Substance: PREGABALIN
     Indication: Product used for unknown indication
  2. PREGABALIN [Suspect]
     Active Substance: PREGABALIN
     Route: 048
  3. PREGABALIN [Suspect]
     Active Substance: PREGABALIN
     Route: 048
  4. PREGABALIN [Suspect]
     Active Substance: PREGABALIN
  5. PREGABALIN [Suspect]
     Active Substance: PREGABALIN
     Dosage: UNK, QD (20-25 CAPSULES PER DAY, APPROXIMATELY 7500 MG), CAPSULE
  6. PREGABALIN [Suspect]
     Active Substance: PREGABALIN
     Dosage: UNK, QD (20-25 CAPSULES PER DAY, APPROXIMATELY 7500 MG), CAPSULE
     Route: 048
  7. PREGABALIN [Suspect]
     Active Substance: PREGABALIN
     Dosage: UNK, QD (20-25 CAPSULES PER DAY, APPROXIMATELY 7500 MG), CAPSULE
  8. PREGABALIN [Suspect]
     Active Substance: PREGABALIN
     Dosage: UNK, QD (20-25 CAPSULES PER DAY, APPROXIMATELY 7500 MG), CAPSULE
     Route: 048
  9. PREGABALIN [Suspect]
     Active Substance: PREGABALIN
     Route: 065
  10. PREGABALIN [Suspect]
     Active Substance: PREGABALIN
     Route: 065
  11. PREGABALIN [Suspect]
     Active Substance: PREGABALIN
  12. PREGABALIN [Suspect]
     Active Substance: PREGABALIN

REACTIONS (13)
  - Intentional overdose [Unknown]
  - Drug dependence [Unknown]
  - Drug abuse [Unknown]
  - Withdrawal syndrome [Unknown]
  - Irritability [Unknown]
  - Restlessness [Unknown]
  - Feeling jittery [Unknown]
  - Insomnia [Unknown]
  - Paraesthesia [Unknown]
  - Pain in extremity [Unknown]
  - Headache [Unknown]
  - Vomiting [Unknown]
  - Off label use [Unknown]
